FAERS Safety Report 6596840-3 (Version None)
Quarter: 2010Q1

REPORT INFORMATION
  Report Type: 
  Country: None (occurrence: None)
  Receive Date: 20100219
  Receipt Date: 20100219
  Transmission Date: 20100710
  Serious: Yes (Hospitalization)
  Sender: FDA-Public Use
  Company Number: None

PATIENT
  Sex: Male
  Weight: 113.6 kg

DRUGS (1)
  1. BYETTA [Suspect]
     Indication: TYPE 2 DIABETES MELLITUS
     Dosage: 0.5 MCG TWICE DAILY 057 BEFORE MEALS
     Dates: start: 20070101, end: 20090101

REACTIONS (1)
  - PANCREATITIS ACUTE [None]
